FAERS Safety Report 9641374 (Version 2)
Quarter: 2013Q4

REPORT INFORMATION
  Report Type: Spontaneous
  Country: JP (occurrence: None)
  Receive Date: 20131021
  Receipt Date: 20131025
  Transmission Date: 20140711
  Serious: Yes (Hospitalization)
  Sender: FDA-Public Use
  Company Number: JP-013301

PATIENT
  Age: 39 Year
  Sex: Female

DRUGS (1)
  1. DESMOPRESSIN (DESMOPRESSIN) [Suspect]
     Indication: DIABETES INSIPIDUS

REACTIONS (3)
  - Cardiomyopathy [None]
  - Hypertrophic cardiomyopathy [None]
  - Pulmonary hypertension [None]
